FAERS Safety Report 6011365-1 (Version None)
Quarter: 2008Q4

REPORT INFORMATION
  Report Type: 
  Country: None (occurrence: None)
  Receive Date: 20081217
  Receipt Date: 20081217
  Transmission Date: 20090506
  Serious: Yes (Death)
  Sender: FDA-Public Use
  Company Number: None

PATIENT
  Age: 61 Year
  Sex: Female
  Weight: 58.9676 kg

DRUGS (5)
  1. SIMVASTIN [Suspect]
     Indication: PARKINSON'S DISEASE
  2. AMANTADINE HCL [Suspect]
     Indication: PARKINSON'S DISEASE
  3. LORAZEPAM [Suspect]
     Indication: PARKINSON'S DISEASE
  4. ROPINIROLE [Suspect]
     Indication: SLEEP APNOEA SYNDROME
  5. HYDROCODONE [Suspect]
     Indication: SLEEP APNOEA SYNDROME

REACTIONS (2)
  - ASPIRATION [None]
  - CEREBROVASCULAR ACCIDENT [None]
